FAERS Safety Report 16910742 (Version 1)
Quarter: 2019Q4

REPORT INFORMATION
  Report Type: Spontaneous
  Country: AU (occurrence: AU)
  Receive Date: 20191012
  Receipt Date: 20191012
  Transmission Date: 20200122
  Serious: Yes (Other)
  Sender: FDA-Public Use
  Company Number: AU-009507513-1910AUS006069

PATIENT
  Age: 87 Year
  Sex: Male

DRUGS (1)
  1. ELEUPHRAT [Suspect]
     Active Substance: BETAMETHASONE DIPROPIONATE
     Indication: PHIMOSIS
     Dosage: DAILY

REACTIONS (2)
  - Epididymitis [Unknown]
  - Off label use [Unknown]
